FAERS Safety Report 12082291 (Version 1)
Quarter: 2016Q1

REPORT INFORMATION
  Report Type: Spontaneous
  Country: US (occurrence: US)
  Receive Date: 20160217
  Receipt Date: 20160217
  Transmission Date: 20160526
  Serious: Yes (Other)
  Sender: FDA-Public Use
  Company Number: US-ZYDUS-010242

PATIENT
  Age: 61 Year
  Sex: Female

DRUGS (4)
  1. CYCLOBENZAPRINE/CYCLOBENZAPRINE HYDROCHLORIDE [Concomitant]
     Indication: PAIN PROPHYLAXIS
     Route: 065
  2. ACETYLSALICYLIC ACID [Concomitant]
     Active Substance: ASPIRIN
     Indication: PRODUCT USED FOR UNKNOWN INDICATION
     Route: 065
  3. IBUPROFEN. [Concomitant]
     Active Substance: IBUPROFEN
     Indication: PRODUCT USED FOR UNKNOWN INDICATION
     Dosage: 400MG AS NEEDED
     Route: 065
  4. NAPROXEN. [Suspect]
     Active Substance: NAPROXEN
     Indication: PAIN PROPHYLAXIS
     Dosage: 100 MG OF NAPROXEN DAILY FOR 7 DAYS,   INCREASED TO 250 MG
     Route: 065

REACTIONS (1)
  - Serum sickness-like reaction [Recovered/Resolved]
